FAERS Safety Report 26203461 (Version 1)
Quarter: 2025Q4

REPORT INFORMATION
  Report Type: Spontaneous
  Country: US (occurrence: None)
  Receive Date: 20251223
  Receipt Date: 20251223
  Transmission Date: 20260118
  Serious: Yes (Life-Threatening, Other)
  Sender: FDA-CTU
  Company Number: None

PATIENT
  Age: 68 Year
  Sex: Female

DRUGS (8)
  1. OMEPRAZOLE [Suspect]
     Active Substance: OMEPRAZOLE
     Indication: Gastric bypass
     Dosage: OTHER QUANTITY : 1 TABLET(S);
     Route: 048
  2. OMEPRAZOLE [Suspect]
     Active Substance: OMEPRAZOLE
     Indication: Postoperative care
  3. PREGABALIN [Concomitant]
     Active Substance: PREGABALIN
  4. FISH OIL [Concomitant]
     Active Substance: FISH OIL
  5. BIOTIN [Concomitant]
     Active Substance: BIOTIN
  6. VITAMINS [Concomitant]
     Active Substance: VITAMINS
  7. VITAMIN K [Concomitant]
     Active Substance: PHYTONADIONE
  8. VITAMIN D [Concomitant]
     Active Substance: VITAMIN D NOS

REACTIONS (14)
  - Obstructive airways disorder [None]
  - Pain [None]
  - Flatulence [None]
  - Aphonia [None]
  - Myalgia [None]
  - Back pain [None]
  - Pain in extremity [None]
  - Abdominal pain upper [None]
  - Mouth ulceration [None]
  - Arthralgia [None]
  - Muscle spasms [None]
  - Eye irritation [None]
  - Dry mouth [None]
  - Chest pain [None]

NARRATIVE: CASE EVENT DATE: 20251223
